FAERS Safety Report 25901162 (Version 1)
Quarter: 2025Q4

REPORT INFORMATION
  Report Type: Spontaneous
  Country: GB (occurrence: None)
  Receive Date: 20251009
  Receipt Date: 20251009
  Transmission Date: 20260117
  Serious: Yes (Hospitalization, Disabling, Other)
  Sender: ORGANON
  Company Number: None

PATIENT
  Age: 23 Year
  Sex: Female

DRUGS (1)
  1. ELOCON [Suspect]
     Active Substance: MOMETASONE FUROATE
     Indication: Eczema
     Dosage: 1 A DAY FOR A MONTH BUT TAPERED BY END OF MONTH TO JUST WEEKENDS

REACTIONS (2)
  - Dermatitis exfoliative generalised [Not Recovered/Not Resolved]
  - Medication error [Unknown]

NARRATIVE: CASE EVENT DATE: 20230501
